FAERS Safety Report 7609099-2 (Version None)
Quarter: 2011Q3

REPORT INFORMATION
  Report Type: 
  Country: None (occurrence: None)
  Receive Date: 20110714
  Receipt Date: 20110704
  Transmission Date: 20111222
  Serious: Yes (Hospitalization)
  Sender: FDA-Public Use
  Company Number: CA-ABBOTT-11P-028-0836292-00

PATIENT
  Sex: Male
  Weight: 108.96 kg

DRUGS (9)
  1. FUROSEMIDE [Concomitant]
     Indication: HYPERTENSION
     Route: 048
     Dates: start: 20090101
  2. FOSINOPRIL SODIUM [Concomitant]
     Indication: HYPERTENSION
     Route: 048
     Dates: start: 20090101
  3. HUMIRA [Suspect]
     Indication: CROHN'S DISEASE
     Route: 058
     Dates: start: 20110527, end: 20110610
  4. BACID [Concomitant]
     Indication: CLOSTRIDIAL INFECTION
     Route: 048
     Dates: start: 20110623
  5. ARTHRITIS ACETAMINOPHEN [Concomitant]
     Indication: ARTHRITIS
     Route: 048
     Dates: start: 20090101
  6. LIPITOR [Concomitant]
     Indication: BLOOD CHOLESTEROL INCREASED
     Route: 048
     Dates: start: 20090101
  7. METFORMIN HCL [Concomitant]
     Indication: DIABETES MELLITUS
     Route: 048
     Dates: start: 20110401
  8. METOPROLOL SUCCINATE [Concomitant]
     Indication: MYOCARDIAL INFARCTION
     Route: 048
     Dates: start: 20090101
  9. ASPIRIN [Concomitant]
     Indication: MYOCARDIAL INFARCTION
     Route: 048
     Dates: start: 20040101

REACTIONS (4)
  - NAUSEA [None]
  - ORAL HERPES [None]
  - HYPOPNOEA [None]
  - CELLULITIS [None]
